FAERS Safety Report 8226698-8 (Version None)
Quarter: 2012Q1

REPORT INFORMATION
  Report Type: 
  Country: None (occurrence: None)
  Receive Date: 20120322
  Receipt Date: 20120317
  Transmission Date: 20120608
  Serious: Yes (Other)
  Sender: FDA-Public Use
  Company Number: US-BAYER-2012-002340

PATIENT
  Sex: Female
  Weight: 77.098 kg

DRUGS (6)
  1. NUVARING [Concomitant]
     Dosage: UNK
     Dates: start: 20110815, end: 20120104
  2. DROSPIRENONE AND ETHINYL ESTRADIOL [Suspect]
     Indication: CONTRACEPTION
     Dosage: UNK
     Dates: start: 20080101, end: 20100401
  3. LUTERA-28 [Concomitant]
     Dosage: UNK
     Dates: start: 20100412, end: 20100715
  4. YASMIN [Suspect]
     Indication: CONTRACEPTION
     Dosage: UNK
     Dates: start: 20080101, end: 20100401
  5. LEVSIN [Concomitant]
     Indication: IRRITABLE BOWEL SYNDROME
     Route: 048
  6. ORTHO TRI-CYCLEN [Concomitant]
     Dosage: UNK
     Dates: start: 20080702, end: 20090529

REACTIONS (5)
  - CHEST PAIN [None]
  - GALLBLADDER DISORDER [None]
  - CHOLECYSTITIS CHRONIC [None]
  - VOMITING [None]
  - DIARRHOEA [None]
